FAERS Safety Report 5959432-2 (Version None)
Quarter: 2008Q4

REPORT INFORMATION
  Report Type: 
  Country: None (occurrence: None)
  Receive Date: 20081120
  Receipt Date: 20081006
  Transmission Date: 20090506
  Serious: No
  Sender: FDA-Public Use
  Company Number: A0750620A

PATIENT
  Age: 63 Year
  Sex: Female

DRUGS (4)
  1. VERAMYST [Suspect]
     Dosage: 2SPR PER DAY
     Route: 045
     Dates: start: 20080801, end: 20081003
  2. ZYRTEC [Concomitant]
  3. ACCUPRIL [Concomitant]
  4. TRIAMTERENE [Concomitant]

REACTIONS (5)
  - BACK PAIN [None]
  - CHILLS [None]
  - COUGH [None]
  - HEADACHE [None]
  - INFLUENZA LIKE ILLNESS [None]
